FAERS Safety Report 20092716 (Version 1)
Quarter: 2021Q4

REPORT INFORMATION
  Report Type: Report from Study
  Country: US (occurrence: US)
  Receive Date: 20211120
  Receipt Date: 20211120
  Transmission Date: 20220303
  Serious: Yes (Other)
  Sender: FDA-Public Use
  Company Number: US-AUROBINDO-AUR-APL-2021-047625

PATIENT
  Age: 77 Year
  Sex: Male

DRUGS (4)
  1. AMIODARONE HYDROCHLORIDE [Suspect]
     Active Substance: AMIODARONE HYDROCHLORIDE
     Indication: Cardiomyopathy
     Dosage: UNK
     Route: 065
  2. DOFETILIDE [Suspect]
     Active Substance: DOFETILIDE
     Indication: Cardiomyopathy
     Dosage: UNK
     Route: 065
  3. MEXILETINE [Suspect]
     Active Substance: MEXILETINE
     Indication: Cardiomyopathy
  4. SOTALOL [Suspect]
     Active Substance: SOTALOL
     Indication: Cardiomyopathy

REACTIONS (2)
  - Pulmonary toxicity [Unknown]
  - Electrocardiogram QT prolonged [Unknown]
